APPROVED DRUG PRODUCT: VITAMIN K1
Active Ingredient: PHYTONADIONE
Strength: 10MG/ML
Dosage Form/Route: INJECTABLE;INJECTION
Application: A087956 | Product #001
Applicant: HOSPIRA INC
Approved: Jul 25, 1983 | RLD: No | RS: No | Type: DISCN